FAERS Safety Report 7247331-8 (Version None)
Quarter: 2011Q1

REPORT INFORMATION
  Report Type: 
  Country: None (occurrence: None)
  Receive Date: 20110127
  Receipt Date: 20110119
  Transmission Date: 20110831
  Serious: Yes (Hospitalization)
  Sender: FDA-Public Use
  Company Number: B0696105A

PATIENT
  Sex: Female

DRUGS (3)
  1. METFORMIN [Concomitant]
     Route: 048
  2. CANDESARTAN CILEXETIL + HYDROCHLOROTHIAZIDE [Concomitant]
     Route: 048
  3. AUGMENTIN [Suspect]
     Indication: COUGH
     Route: 048
     Dates: start: 20110114, end: 20110114

REACTIONS (4)
  - TONGUE OEDEMA [None]
  - DYSPNOEA [None]
  - PRURITUS [None]
  - ERYTHEMA [None]
